FAERS Safety Report 17273580 (Version 1)
Quarter: 2020Q1

REPORT INFORMATION
  Report Type: Spontaneous
  Country: US (occurrence: US)
  Receive Date: 20200115
  Receipt Date: 20200115
  Transmission Date: 20200409
  Serious: Yes (Life-Threatening, Hospitalization, Other)
  Sender: FDA-Public Use
  Company Number: None

PATIENT
  Age: 81 Year
  Sex: Female
  Weight: 90 kg

DRUGS (21)
  1. LEVETIRACETAM 750 MG PO BID [Concomitant]
  2. ELIQUIS [Suspect]
     Active Substance: APIXABAN
     Indication: ATRIAL FIBRILLATION
     Route: 048
  3. ASCORBIC ACID 1000 MG PO QPM [Concomitant]
  4. DIGOXIN 125 MCG PO LUNCH [Concomitant]
  5. FERROUS SULFATE 325 MG PO QPM [Concomitant]
  6. POTASSIUM CL 7.5 ML PO DAILY [Concomitant]
  7. METFORMIN HCL ER 500 MG PO LUNCH [Concomitant]
  8. METOPROLOL TARTRATE 100 MG PO BID [Concomitant]
  9. PANTOPRAZOLE SODIUM 40 MG PO LUNCH [Concomitant]
  10. CALCIUM CARBONATE 600 MG PO QPM [Concomitant]
  11. DARIFENACIN HYDROBROMIDE 15 MG PO HS [Concomitant]
  12. VITAMIN E 400 U PO QPM [Concomitant]
  13. APIXIBAN 5 MG PO BID [Concomitant]
  14. GLIPIZIDE ER 10 MG PO QAM [Concomitant]
  15. DILTIAZEM HCL ER 240 MG PO LUNCH [Concomitant]
  16. ATORVASTATIN CALCIUM 20 MG PO HS [Concomitant]
  17. CHOLECALCIFEROL 1000 U PO QPM [Concomitant]
  18. LEVOTHYROXINE SODIUM 112 MCG PO ACBK [Concomitant]
  19. SERTRALINE HCL 50 MG PO HS [Concomitant]
  20. CYANOCOBALAMIN 1000 MCG PO QPM [Concomitant]
  21. OMEGA-3 FATTY ACIDS/FISH OIL 1000 MG PO LUNCH [Concomitant]

REACTIONS (6)
  - Mental status changes [None]
  - Cerebellar haemorrhage [None]
  - Hydrocephalus [None]
  - Vomiting [None]
  - Generalised tonic-clonic seizure [None]
  - Coordination abnormal [None]

NARRATIVE: CASE EVENT DATE: 20200114
